FAERS Safety Report 8591106-4 (Version None)
Quarter: 2012Q3

REPORT INFORMATION
  Report Type: 
  Country: None (occurrence: None)
  Receive Date: 20120813
  Receipt Date: 20120806
  Transmission Date: 20120928
  Serious: Yes (Other)
  Sender: FDA-Public Use
  Company Number: CHPA2012US017628

PATIENT
  Age: 52 Year
  Sex: Female

DRUGS (3)
  1. EXCEDRIN EXTRA STRENGTH TABLETS [Suspect]
     Indication: MIGRAINE
     Dosage: 2-4 CAPLETS AT A TIME, QD
     Route: 048
     Dates: start: 19920101
  2. EXCEDRIN (MIGRAINE) [Suspect]
     Indication: MIGRAINE
     Dosage: 2-5 TABLETS AT A TIME, QD
     Route: 048
  3. ACETAMINOPHEN [Concomitant]
     Indication: MIGRAINE
     Dosage: UNK, UNK

REACTIONS (3)
  - DRUG DEPENDENCE [None]
  - DISEASE RECURRENCE [None]
  - DRUG INEFFECTIVE [None]
